FAERS Safety Report 10374688 (Version 1)
Quarter: 2014Q3

REPORT INFORMATION
  Report Type: Spontaneous
  Country: US (occurrence: None)
  Receive Date: 20140808
  Receipt Date: 20140808
  Transmission Date: 20150326
  Serious: Yes (Hospitalization)
  Sender: FDA-Public Use
  Company Number: None

PATIENT
  Age: 44 Year
  Sex: Male
  Weight: 68.49 kg

DRUGS (4)
  1. PREDNISONE. [Concomitant]
     Active Substance: PREDNISONE
  2. RITUXIMAB 10 MG/ML GENENTECH USA [Suspect]
     Active Substance: RITUXIMAB
     Indication: INVESTIGATION
     Dosage: 1000 MG ONCE IVPG (GIVEN 3M POST TRANSPLANT)
     Route: 042
     Dates: start: 20140512
  3. CELLCEPT [Concomitant]
     Active Substance: MYCOPHENOLATE MOFETIL\MYCOPHENOLATE MOFETIL HYDROCHLORIDE
  4. TACROLIMUS. [Concomitant]
     Active Substance: TACROLIMUS

REACTIONS (2)
  - Diarrhoea [None]
  - Bladder spasm [None]

NARRATIVE: CASE EVENT DATE: 20140715
